FAERS Safety Report 9447918 (Version 3)
Quarter: 2013Q3

REPORT INFORMATION
  Report Type: Spontaneous
  Country: GB (occurrence: None)
  Receive Date: 20130806
  Receipt Date: 20130828
  Transmission Date: 20140515
  Serious: Yes (Life-Threatening, Hospitalization, Disabling, Other)
  Sender: FDA-Public Use
  Company Number: TUK2013A00222

PATIENT
  Age: 67 Year
  Sex: Female

DRUGS (10)
  1. PIOGLITAZONE HYDROCHLORIDE [Suspect]
     Indication: PRODUCT USED FOR UNKNOWN INDICATION
     Route: 048
     Dates: end: 20130624
  2. ADCAL D3 COLECALCIFEROL, CALCIUM CARBONATE [Concomitant]
  3. ARIPRAZOLE ARIPRAZOLE [Concomitant]
  4. ATORVASTATIN ATORVASTATIN [Concomitant]
  5. CREON (PANCREATIN) [Concomitant]
  6. FERROUS FUMARATE (FERROUS FUMARATE) [Concomitant]
  7. FLUOXETINE (FLUXETINE) [Concomitant]
  8. LEVOTHYROXINE (LEVOTHYROXINE) [Concomitant]
  9. METFORMIN (METFORMIN) [Concomitant]
  10. RAMIPRIL (RAMIPRIL) [Concomitant]

REACTIONS (11)
  - Renal failure acute [None]
  - Kidney enlargement [None]
  - Metastases to lung [None]
  - Malignant neoplasm of unknown primary site [None]
  - Abdominal discomfort [None]
  - Anaemia [None]
  - Bladder neoplasm [None]
  - Renal failure acute [None]
  - Cells in urine [None]
  - Pelvic mass [None]
  - Metastasis [None]
